FAERS Safety Report 23423738 (Version 1)
Quarter: 2024Q1

REPORT INFORMATION
  Report Type: Spontaneous
  Country: US (occurrence: US)
  Receive Date: 20240119
  Receipt Date: 20240119
  Transmission Date: 20240410
  Serious: No
  Sender: FDA-Public Use
  Company Number: US-SA-SAC20240112000818

PATIENT
  Age: 67 Year
  Sex: Female

DRUGS (4)
  1. DUPIXENT [Suspect]
     Active Substance: DUPILUMAB
     Indication: Dermatitis atopic
     Dosage: 300 MG, QOW
     Route: 058
  2. IRON [Suspect]
     Active Substance: IRON
     Indication: Blood iron decreased
     Dosage: 400 ML, QW
     Route: 065
  3. IRON [Suspect]
     Active Substance: IRON
     Dosage: 200 ML, QW
     Route: 065
  4. WELLBUTRIN [Concomitant]
     Active Substance: BUPROPION HYDROCHLORIDE
     Dosage: 100MG ONCE A DAY

REACTIONS (1)
  - Blood iron decreased [Unknown]
